FAERS Safety Report 9813936 (Version 1)
Quarter: 2014Q1

REPORT INFORMATION
  Report Type: Spontaneous
  Country: US (occurrence: US)
  Receive Date: 20140113
  Receipt Date: 20140113
  Transmission Date: 20141002
  Serious: Yes (Death)
  Sender: FDA-Public Use
  Company Number: US-BAYER-2014-004393

PATIENT
  Age: 62 Year
  Sex: Male

DRUGS (2)
  1. PARACETAMOL + PHENYLEPHRINE + DEXTROMETHORPHAN + DOXYLAMINE [Suspect]
  2. SERTRALINE [Suspect]
     Route: 048

REACTIONS (2)
  - Drug abuse [Fatal]
  - Intentional overdose [Fatal]
